FAERS Safety Report 8234045-0 (Version None)
Quarter: 2012Q1

REPORT INFORMATION
  Report Type: 
  Country: None (occurrence: None)
  Receive Date: 20120326
  Receipt Date: 20120326
  Transmission Date: 20120608
  Serious: Yes (Other)
  Sender: FDA-Public Use
  Company Number: None

PATIENT
  Age: 52 Year
  Sex: Female
  Weight: 808.3 kg

DRUGS (1)
  1. ERTAPENEM [Suspect]
     Dosage: 1 GRAM
     Route: 042

REACTIONS (3)
  - EYE MOVEMENT DISORDER [None]
  - ABDOMINAL PAIN [None]
  - DYSPNOEA [None]
